FAERS Safety Report 25060226 (Version 1)
Quarter: 2025Q1

REPORT INFORMATION
  Report Type: Spontaneous
  Country: US (occurrence: US)
  Receive Date: 20250310
  Receipt Date: 20250310
  Transmission Date: 20250409
  Serious: No
  Sender: SANOFI AVENTIS
  Company Number: US-SA-2025SA069363

PATIENT
  Age: 29 Year
  Sex: Female
  Weight: 95.238 kg

DRUGS (8)
  1. DUPIXENT [Suspect]
     Active Substance: DUPILUMAB
     Indication: Asthma
     Dosage: 300 MG, QOW
     Route: 058
     Dates: start: 202003
  2. UBRELVY [Concomitant]
     Active Substance: UBROGEPANT
  3. TRIAMCINOLONE [Concomitant]
     Active Substance: TRIAMCINOLONE
  4. NEXPLANON [Concomitant]
     Active Substance: ETONOGESTREL
  5. TOPIRAMATE [Concomitant]
     Active Substance: TOPIRAMATE
  6. ZYRTEC [Concomitant]
     Active Substance: CETIRIZINE HYDROCHLORIDE
  7. BREO ELLIPTA [Concomitant]
     Active Substance: FLUTICASONE FUROATE\VILANTEROL TRIFENATATE
  8. PROAIR HFA [Concomitant]
     Active Substance: ALBUTEROL SULFATE

REACTIONS (2)
  - Asthma [Unknown]
  - Rebound effect [Unknown]

NARRATIVE: CASE EVENT DATE: 20250201
